FAERS Safety Report 20475483 (Version 1)
Quarter: 2022Q1

REPORT INFORMATION
  Report Type: Report from Study
  Country: US (occurrence: US)
  Receive Date: 20220215
  Receipt Date: 20220215
  Transmission Date: 20220423
  Serious: Yes (Hospitalization)
  Sender: FDA-Public Use
  Company Number: US-KOREA IPSEN Pharma-2022-02983

PATIENT
  Age: 70 Year
  Sex: Male

DRUGS (1)
  1. SOMATULINE DEPOT [Suspect]
     Active Substance: LANREOTIDE ACETATE
     Indication: Carcinoid tumour of the small bowel
     Dosage: 120 MG/0.5 ML
     Route: 058
     Dates: start: 20191129

REACTIONS (4)
  - Malaise [Recovering/Resolving]
  - Dyspnoea [Recovering/Resolving]
  - Aspiration pleural cavity [Recovering/Resolving]
  - Abdominal cavity drainage [Recovering/Resolving]

NARRATIVE: CASE EVENT DATE: 20220127
